FAERS Safety Report 17821038 (Version 1)
Quarter: 2020Q2

REPORT INFORMATION
  Report Type: Spontaneous
  Country: IT (occurrence: IT)
  Receive Date: 20200525
  Receipt Date: 20200525
  Transmission Date: 20200714
  Serious: Yes (Hospitalization)
  Sender: FDA-Public Use
  Company Number: IT-PFIZER INC-2020204019

PATIENT
  Age: 41 Year
  Sex: Male

DRUGS (3)
  1. ZITROMAX AVIUM [Suspect]
     Active Substance: AZITHROMYCIN
     Indication: CORONAVIRUS INFECTION
     Dosage: 1 DF, 1X/DAY
     Route: 048
     Dates: start: 20200420
  2. KALETRA [Suspect]
     Active Substance: LOPINAVIR\RITONAVIR
     Indication: CORONAVIRUS INFECTION
     Dosage: 4 DF, 1X/DAY
     Route: 048
     Dates: start: 20200420, end: 20200428
  3. PLAQUENIL [Suspect]
     Active Substance: HYDROXYCHLOROQUINE SULFATE
     Indication: CORONAVIRUS INFECTION
     Dosage: 2 DF, 1X/DAY
     Route: 048
     Dates: start: 20200420, end: 20200428

REACTIONS (3)
  - Off label use [Recovering/Resolving]
  - Hypertransaminasaemia [Recovering/Resolving]
  - Product use in unapproved indication [Recovering/Resolving]

NARRATIVE: CASE EVENT DATE: 20200420
